FAERS Safety Report 5346511-6 (Version None)
Quarter: 2007Q2

REPORT INFORMATION
  Report Type: 
  Country: None (occurrence: None)
  Receive Date: 20070605
  Receipt Date: 20070525
  Transmission Date: 20071010
  Serious: Yes (Hospitalization)
  Sender: FDA-Public Use
  Company Number: CA-GILEAD-2007-0012008

PATIENT
  Sex: Male
  Weight: 53.3 kg

DRUGS (4)
  1. VIREAD [Suspect]
     Indication: HIV INFECTION
     Route: 048
     Dates: start: 20070320, end: 20070407
  2. EPIVIR [Concomitant]
     Indication: HIV INFECTION
     Dates: start: 20010101, end: 20070407
  3. ZERIT [Concomitant]
     Indication: HIV INFECTION
     Dates: start: 20010101
  4. SUSTIVA [Concomitant]
     Indication: HIV INFECTION
     Dates: end: 20060101

REACTIONS (7)
  - ALANINE AMINOTRANSFERASE INCREASED [None]
  - ASPARTATE AMINOTRANSFERASE INCREASED [None]
  - BLOOD CREATINE PHOSPHOKINASE INCREASED [None]
  - BLOOD LACTIC ACID INCREASED [None]
  - BLOOD PHOSPHORUS DECREASED [None]
  - MITOCHONDRIAL TOXICITY [None]
  - SEPSIS [None]
